FAERS Safety Report 12338160 (Version 3)
Quarter: 2016Q2

REPORT INFORMATION
  Report Type: Report from Study
  Country: KR (occurrence: KR)
  Receive Date: 20160505
  Receipt Date: 20160519
  Transmission Date: 20160815
  Serious: Yes (Hospitalization)
  Sender: FDA-Public Use
  Company Number: PHHO2016KR006454

PATIENT
  Age: 33 Year
  Sex: Female
  Weight: 64.1 kg

DRUGS (2)
  1. LDK378 [Suspect]
     Active Substance: CERITINIB
     Indication: NON-SMALL CELL LUNG CANCER METASTATIC
     Dosage: 600 MG, QD WITH A LOW FAT MEAL
     Route: 048
     Dates: start: 20160127, end: 20160421
  2. LDK378 [Suspect]
     Active Substance: CERITINIB
     Dosage: 600 MG, QD WITH A LOW FAT MEAL
     Route: 048
     Dates: start: 20160430

REACTIONS (1)
  - Pericardial effusion [Recovered/Resolved]

NARRATIVE: CASE EVENT DATE: 20160404
